FAERS Safety Report 4929304-0 (Version None)
Quarter: 2006Q1

REPORT INFORMATION
  Report Type: 
  Country: None (occurrence: None)
  Receive Date: 20060301
  Receipt Date: 20060220
  Transmission Date: 20060701
  Serious: Yes (Hospitalization)
  Sender: FDA-Public Use
  Company Number: AU-BRISTOL-MYERS SQUIBB COMPANY-13297635

PATIENT
  Sex: Male

DRUGS (4)
  1. EFAVIRENZ [Suspect]
     Indication: HIV INFECTION
     Route: 048
  2. STAVUDINE [Suspect]
  3. LAMIVUDINE [Suspect]
  4. LOPINAVIR [Suspect]

REACTIONS (3)
  - AORTIC VALVE DISEASE [None]
  - CEREBELLAR SYNDROME [None]
  - HEPATITIS [None]
